FAERS Safety Report 5279354-2 (Version None)
Quarter: 2007Q1

REPORT INFORMATION
  Report Type: 
  Country: None (occurrence: None)
  Receive Date: 20070328
  Receipt Date: 20060223
  Transmission Date: 20070707
  Serious: No
  Sender: FDA-Public Use
  Company Number: US-AMGEN-US168920

PATIENT
  Sex: Male

DRUGS (2)
  1. NEUPOGEN [Suspect]
     Indication: CHEMOTHERAPY
     Route: 065
  2. NEULASTA [Suspect]
     Indication: CHEMOTHERAPY
     Route: 065
     Dates: start: 20060124

REACTIONS (3)
  - DIARRHOEA HAEMORRHAGIC [None]
  - FLUID RETENTION [None]
  - SWELLING [None]
